FAERS Safety Report 17769300 (Version 1)
Quarter: 2020Q2

REPORT INFORMATION
  Report Type: Report from Study
  Country: IT (occurrence: IT)
  Receive Date: 20200512
  Receipt Date: 20200512
  Transmission Date: 20200714
  Serious: Yes (Death)
  Sender: FDA-Public Use
  Company Number: IT-ROCHE-2594798

PATIENT

DRUGS (5)
  1. MIDAZOLAM. [Concomitant]
     Active Substance: MIDAZOLAM
  2. ENOXAPARINA [Concomitant]
     Active Substance: ENOXAPARIN
  3. TOCILIZUMAB. [Suspect]
     Active Substance: TOCILIZUMAB
     Dosage: ON 27/MAR/2020, THE PATIENT RECEIVED TOCILIZUMAB
     Route: 042
     Dates: start: 20200327
  4. TOCILIZUMAB. [Suspect]
     Active Substance: TOCILIZUMAB
     Indication: COVID-19 PNEUMONIA
     Route: 042
     Dates: start: 20200326
  5. MORFINA [MORPHINE] [Concomitant]

REACTIONS (1)
  - Respiratory failure [Fatal]

NARRATIVE: CASE EVENT DATE: 20200329
